FAERS Safety Report 9009106 (Version 1)
Quarter: 2013Q1

REPORT INFORMATION
  Report Type: Spontaneous
  Country: US (occurrence: US)
  Receive Date: 20130111
  Receipt Date: 20130111
  Transmission Date: 20140127
  Serious: No
  Sender: FDA-Public Use
  Company Number: US-GLAXOSMITHKLINE-A0996132A

PATIENT
  Age: 71 Year
  Sex: Male

DRUGS (3)
  1. JALYN [Suspect]
     Indication: BENIGN PROSTATIC HYPERPLASIA
     Dosage: .5MG PER DAY
     Route: 048
     Dates: start: 2012
  2. OXYCODONE [Concomitant]
  3. GABAPENTIN [Concomitant]

REACTIONS (3)
  - Breast pain [Unknown]
  - Breast enlargement [Unknown]
  - Dry skin [Unknown]
